FAERS Safety Report 5903030-3 (Version None)
Quarter: 2008Q3

REPORT INFORMATION
  Report Type: 
  Country: None (occurrence: None)
  Receive Date: 20080930
  Receipt Date: 20080922
  Transmission Date: 20090109
  Serious: Yes (Hospitalization, Other)
  Sender: FDA-Public Use
  Company Number: US-AMGEN-QUU305893

PATIENT
  Sex: Female

DRUGS (1)
  1. ENBREL [Suspect]
     Indication: PSORIATIC ARTHROPATHY
     Route: 058
     Dates: start: 20040401

REACTIONS (9)
  - CYSTITIS [None]
  - KIDNEY INFECTION [None]
  - MIGRAINE [None]
  - NEPHROLITHIASIS [None]
  - POSTOPERATIVE WOUND INFECTION [None]
  - PREMATURE LABOUR [None]
  - PULMONARY CONGESTION [None]
  - SINUSITIS [None]
  - VOMITING [None]
